FAERS Safety Report 6115775-3 (Version None)
Quarter: 2009Q1

REPORT INFORMATION
  Report Type: 
  Country: None (occurrence: None)
  Receive Date: 20090311
  Receipt Date: 20090226
  Transmission Date: 20090719
  Serious: Yes (Death)
  Sender: FDA-Public Use
  Company Number: US025540

PATIENT
  Sex: Female

DRUGS (2)
  1. FENTORA [Suspect]
     Indication: BACK PAIN
     Dosage: BUCCAL
     Route: 002
  2. FENTORA [Suspect]
     Indication: NEURALGIA
     Dosage: BUCCAL
     Route: 002

REACTIONS (1)
  - DEATH [None]
